FAERS Safety Report 8591242-2 (Version None)
Quarter: 2012Q3

REPORT INFORMATION
  Report Type: 
  Country: None (occurrence: None)
  Receive Date: 20120813
  Receipt Date: 20110411
  Transmission Date: 20120928
  Serious: Yes (Death, Other)
  Sender: FDA-Public Use
  Company Number: PHHY2011KH117091

PATIENT
  Sex: Male

DRUGS (1)
  1. IMATINIB MESYLATE [Suspect]
     Dates: start: 20100630

REACTIONS (5)
  - DEATH [None]
  - CHRONIC MYELOID LEUKAEMIA [None]
  - CARDIAC FAILURE [None]
  - CARDIOMYOPATHY [None]
  - CUTANEOUS TUBERCULOSIS [None]
